FAERS Safety Report 9998219 (Version 3)
Quarter: 2014Q2

REPORT INFORMATION
  Report Type: Report from Study
  Country: US (occurrence: US)
  Receive Date: 20140311
  Receipt Date: 20140506
  Transmission Date: 20141212
  Serious: Yes (Other)
  Sender: FDA-Public Use
  Company Number: US-EXELIXIS-XL18414004055

PATIENT
  Age: 63 Year
  Sex: Male

DRUGS (10)
  1. XL184 [Suspect]
     Indication: PROSTATE CANCER
     Dosage: 60 MG, QD
     Route: 048
     Dates: start: 20131217, end: 20140125
  2. XL184 [Suspect]
     Dosage: 40 MG, QD
     Route: 048
     Dates: start: 20140203, end: 20140210
  3. CELEBREX [Concomitant]
  4. VITAMIN D [Concomitant]
  5. NORCO [Concomitant]
  6. IMODIUM [Concomitant]
  7. ZOCOR [Concomitant]
  8. CIALIS [Concomitant]
  9. LUPRON [Concomitant]
  10. XGEVA [Concomitant]

REACTIONS (1)
  - Corneal epithelium defect [Not Recovered/Not Resolved]
